FAERS Safety Report 4678347-3 (Version None)
Quarter: 2005Q2

REPORT INFORMATION
  Report Type: 
  Country: None (occurrence: None)
  Receive Date: 20050601
  Receipt Date: 20050503
  Transmission Date: 20051028
  Serious: Yes (Other)
  Sender: FDA-Public Use
  Company Number: PHBS2005BE06303

PATIENT
  Age: 76 Year
  Sex: Female

DRUGS (6)
  1. FOSAMAX [Suspect]
     Route: 065
  2. BERAPROST [Concomitant]
     Indication: PULMONARY HYPERTENSION
     Route: 065
  3. MARCOUMAR [Concomitant]
     Indication: PROPHYLAXIS
     Route: 065
     Dates: start: 20021201
  4. ALKERAN [Concomitant]
     Dosage: 0.25 MG/IG FOR 4 DAYS EVERY 6-8 WEEKS
     Route: 065
     Dates: start: 20030422, end: 20040527
  5. MEDROL [Concomitant]
     Dosage: 64 MG/D FOR 4 DAYS EVERY 6-8 WEEKS
     Route: 065
     Dates: start: 20030422, end: 20040427
  6. ZOMETA [Suspect]
     Indication: MULTIPLE MYELOMA
     Dosage: 4 MG, QMO
     Route: 042
     Dates: start: 20030409, end: 20041213

REACTIONS (12)
  - ABSCESS JAW [None]
  - APICAL GRANULOMA [None]
  - ASEPTIC NECROSIS BONE [None]
  - BONE OPERATION [None]
  - DENTAL PROSTHESIS USER [None]
  - FISTULA [None]
  - IMPAIRED HEALING [None]
  - INFECTION [None]
  - MUCOSAL EROSION [None]
  - OSTEOMYELITIS [None]
  - TOOTH EXTRACTION [None]
  - WOUND DEBRIDEMENT [None]
